FAERS Safety Report 5360749-3 (Version None)
Quarter: 2007Q2

REPORT INFORMATION
  Report Type: 
  Country: None (occurrence: None)
  Receive Date: 20070618
  Receipt Date: 20070611
  Transmission Date: 20071010
  Serious: Yes (Hospitalization)
  Sender: FDA-Public Use
  Company Number: FR-ASTRAZENECA-2007CG00887

PATIENT
  Age: 81 Year
  Sex: Female
  Weight: 72 kg

DRUGS (11)
  1. OMEPRAZOLE [Suspect]
     Route: 048
     Dates: start: 20070505
  2. PREVISCAN [Interacting]
     Route: 048
     Dates: start: 20070301, end: 20070504
  3. CORDARONE [Interacting]
     Route: 048
     Dates: start: 20070410
  4. LOPRIL [Concomitant]
  5. DETENSIEL [Concomitant]
  6. LANSOPRAZOLE [Concomitant]
     Dates: end: 20070504
  7. FORLAX [Concomitant]
  8. ACETAMINOPHEN [Concomitant]
  9. LASIX [Concomitant]
     Dates: start: 20070301
  10. DAFALGAN [Concomitant]
     Dates: start: 20070504
  11. TRAMADOL HCL [Concomitant]
     Dates: start: 20070504

REACTIONS (2)
  - DRUG INTERACTION [None]
  - HAEMATOMA [None]
